FAERS Safety Report 8524413-1 (Version None)
Quarter: 2012Q3

REPORT INFORMATION
  Report Type: 
  Country: None (occurrence: None)
  Receive Date: 20120720
  Receipt Date: 20120709
  Transmission Date: 20120928
  Serious: Yes (Hospitalization, Other)
  Sender: FDA-Public Use
  Company Number: US-009507513-1207USA003959

PATIENT

DRUGS (18)
  1. INSULIN [Concomitant]
     Indication: BLOOD GLUCOSE ABNORMAL
     Dosage: UNK
  2. VANCOMYCIN [Concomitant]
     Dosage: 1 G, Q12H
     Route: 042
  3. EPINEPHRINE [Concomitant]
     Route: 042
  4. PROPOFOL [Concomitant]
     Dosage: UNK
  5. PROPOFOL [Concomitant]
     Dosage: UNK
  6. FAMOTIDINE [Concomitant]
     Dosage: 20 MG, Q12H
     Route: 042
  7. ACETAMINOPHEN [Concomitant]
     Indication: PYREXIA
     Dosage: 650 MG, EVERY 4 HOURS AS NEEDED
  8. ZEMURON [Suspect]
     Indication: THERAPEUTIC HYPOTHERMIA
     Dosage: 8 MICROGRAM PER KILOGRAM PER MINUTE
  9. PROPOFOL [Concomitant]
     Indication: THERAPEUTIC HYPOTHERMIA
     Dosage: UNK
  10. PIPERACILLIN AND TAZOBACTAM [Concomitant]
     Dosage: 4.5 G, Q6H
     Route: 042
  11. LORAZEPAM [Concomitant]
  12. FENTANYL [Concomitant]
     Route: 042
  13. METHYLPREDNISOLONE [Concomitant]
     Dosage: 40 MG, Q8H
     Route: 042
  14. ENOXAPARIN SODIUM [Concomitant]
     Dosage: 40 MG, QD
     Route: 058
  15. ATROPINE [Concomitant]
     Route: 042
  16. INDOMETHACIN [Concomitant]
     Dosage: 50 MG, Q12H AS NEEDED
  17. FLUCONAZOLE [Concomitant]
     Dosage: 500 MG, QD
     Route: 042
  18. DILTIAZEM HCL [Concomitant]
     Dosage: 5 MILLIGRAM PER HOUR
     Route: 042

REACTIONS (1)
  - HYPERTHERMIA MALIGNANT [None]
